FAERS Safety Report 12704820 (Version 1)
Quarter: 2016Q3

REPORT INFORMATION
  Report Type: Report from Study
  Country: US (occurrence: US)
  Receive Date: 20160831
  Receipt Date: 20160831
  Transmission Date: 20161109
  Serious: Yes (Hospitalization)
  Sender: FDA-Public Use
  Company Number: US-PFIZER INC-2008071373

PATIENT
  Age: 59 Year
  Sex: Male
  Weight: 110 kg

DRUGS (12)
  1. FISH OIL [Concomitant]
     Active Substance: FISH OIL
     Dosage: QD
     Route: 048
     Dates: start: 200708
  2. HYDROCHLOROTHIAZIDE. [Concomitant]
     Active Substance: HYDROCHLOROTHIAZIDE
     Dosage: QD
     Route: 048
     Dates: start: 20080122
  3. AMBIEN [Concomitant]
     Active Substance: ZOLPIDEM TARTRATE
     Dosage: 10 MG, AS NEEDED
     Route: 048
     Dates: start: 20080416
  4. IBUPROFEN. [Suspect]
     Active Substance: IBUPROFEN
     Indication: OSTEOARTHRITIS
     Dosage: UNK
     Route: 048
     Dates: start: 20071016, end: 20080825
  5. LISINOPRIL. [Concomitant]
     Active Substance: LISINOPRIL
     Dosage: QD
     Route: 048
     Dates: start: 20080122
  6. VITAMIN D [Concomitant]
     Active Substance: CHOLECALCIFEROL
     Dosage: QD
     Route: 048
     Dates: start: 200805
  7. NEXIUM [Concomitant]
     Active Substance: ESOMEPRAZOLE MAGNESIUM
     Dosage: 40 MG, 1X/DAY
     Dates: start: 20080530, end: 20080828
  8. LIPITOR [Concomitant]
     Active Substance: ATORVASTATIN CALCIUM
     Dosage: QD
     Route: 048
     Dates: start: 200610
  9. TYLENOL [Concomitant]
     Active Substance: ACETAMINOPHEN
     Dosage: 250 MG, AS NEEDED
     Route: 048
     Dates: start: 20071022
  10. ATENOLOL. [Concomitant]
     Active Substance: ATENOLOL
     Dosage: 150 MG, 2X/DAY
     Route: 048
     Dates: start: 20071222, end: 20080826
  11. ACETYLSALICYLIC ACID [Concomitant]
     Active Substance: ASPIRIN
     Dosage: QD
     Route: 048
     Dates: start: 200704
  12. NEXIUM [Concomitant]
     Active Substance: ESOMEPRAZOLE MAGNESIUM
     Indication: PROPHYLAXIS
     Dosage: 20 MG, 1X/DAY
     Route: 048
     Dates: start: 20071016, end: 20080529

REACTIONS (1)
  - Transient ischaemic attack [Recovered/Resolved]

NARRATIVE: CASE EVENT DATE: 20080825
